FAERS Safety Report 24091554 (Version 4)
Quarter: 2024Q3

REPORT INFORMATION
  Report Type: Spontaneous
  Country: US (occurrence: US)
  Receive Date: 20240715
  Receipt Date: 20240827
  Transmission Date: 20241017
  Serious: No
  Sender: NOVARTIS
  Company Number: US-002147023-NVSC2024US144899

PATIENT

DRUGS (2)
  1. VALSARTAN [Suspect]
     Active Substance: VALSARTAN
     Indication: Blood pressure measurement
     Dosage: 160 MG
     Route: 065
  2. VALSARTAN [Suspect]
     Active Substance: VALSARTAN
     Dosage: 80 MG
     Route: 065

REACTIONS (4)
  - Anxiety [Unknown]
  - Weight decreased [Unknown]
  - White coat hypertension [Unknown]
  - Hypotension [Unknown]
